FAERS Safety Report 19511309 (Version 1)
Quarter: 2021Q3

REPORT INFORMATION
  Report Type: Spontaneous
  Country: US (occurrence: US)
  Receive Date: 20210709
  Receipt Date: 20210709
  Transmission Date: 20211014
  Serious: Yes (Other)
  Sender: FDA-Public Use
  Company Number: US-MDD US OPERATIONS-MDD202106-001273

PATIENT
  Age: 78 Year
  Sex: Male

DRUGS (7)
  1. LOSARTAN POTASSIUM. [Concomitant]
     Active Substance: LOSARTAN POTASSIUM
     Dosage: NOT PROVIDED
  2. APOKYN [Suspect]
     Active Substance: APOMORPHINE HYDROCHLORIDE
     Indication: PARKINSON^S DISEASE
     Route: 058
  3. ZIOPTAN [Concomitant]
     Active Substance: TAFLUPROST
     Dosage: 0.0015%
  4. CARBIDOPA?LEVODOPA [Concomitant]
     Active Substance: CARBIDOPA\LEVODOPA
     Dosage: NOT PROVIDED
  5. DORZOLAMIDE?TIMOLOL [Concomitant]
     Active Substance: DORZOLAMIDE\TIMOLOL
     Dosage: NOT PROVIDED
  6. LATANOPROST. [Concomitant]
     Active Substance: LATANOPROST
     Dosage: 0.005%
  7. SIMBRINZA [Concomitant]
     Active Substance: BRIMONIDINE TARTRATE\BRINZOLAMIDE
     Dosage: 1%?0.2%

REACTIONS (1)
  - Neoplasm malignant [Unknown]
